FAERS Safety Report 22273028 (Version 2)
Quarter: 2023Q2

REPORT INFORMATION
  Report Type: Report from Study
  Country: BG (occurrence: BG)
  Receive Date: 20230502
  Receipt Date: 20230622
  Transmission Date: 20230722
  Serious: Yes (Hospitalization)
  Sender: FDA-Public Use
  Company Number: BG-TAKEDA-2022TUS016384

PATIENT
  Age: 81 Year
  Sex: Female
  Weight: 85 kg

DRUGS (1)
  1. VEDOLIZUMAB [Suspect]
     Active Substance: VEDOLIZUMAB
     Indication: Colitis ulcerative
     Dosage: 300 MILLIGRAM
     Route: 042
     Dates: start: 20210414

REACTIONS (8)
  - Respiratory tract infection bacterial [Unknown]
  - Visual impairment [Unknown]
  - Foot fracture [Unknown]
  - Fall [Unknown]
  - Skin laceration [Unknown]
  - Intervertebral disc disorder [Unknown]
  - Memory impairment [Unknown]
  - Constipation [Unknown]

NARRATIVE: CASE EVENT DATE: 20230301
